FAERS Safety Report 10522747 (Version 2)
Quarter: 2014Q4

REPORT INFORMATION
  Report Type: Spontaneous
  Country: CN (occurrence: CN)
  Receive Date: 20141016
  Receipt Date: 20141016
  Transmission Date: 20150528
  Serious: Yes (Hospitalization)
  Sender: FDA-Public Use
  Company Number: CN-ASTRAZENECA-2014SE55188

PATIENT
  Age: 88 Year
  Sex: Male

DRUGS (3)
  1. PLENDIL [Suspect]
     Active Substance: FELODIPINE
     Indication: ESSENTIAL HYPERTENSION
     Route: 048
     Dates: start: 20140729
  2. PLENDIL [Suspect]
     Active Substance: FELODIPINE
     Indication: ESSENTIAL HYPERTENSION
     Route: 048
     Dates: start: 20140727
  3. PLENDIL [Suspect]
     Active Substance: FELODIPINE
     Indication: ESSENTIAL HYPERTENSION
     Route: 048
     Dates: start: 2012

REACTIONS (6)
  - Hypotension [Recovered/Resolved]
  - Blood pressure increased [Recovered/Resolved]
  - Intentional product use issue [Recovered/Resolved]
  - Drug ineffective [Recovered/Resolved]
  - Blood pressure fluctuation [Recovered/Resolved]
  - Diastolic hypotension [Recovered/Resolved]

NARRATIVE: CASE EVENT DATE: 201407
